FAERS Safety Report 5460320-9 (Version None)
Quarter: 2007Q3

REPORT INFORMATION
  Report Type: 
  Country: None (occurrence: None)
  Receive Date: 20070919
  Receipt Date: 20070615
  Transmission Date: 20080115
  Serious: No
  Sender: FDA-Public Use
  Company Number: US-ASTRAZENECA-2007UW14495

PATIENT
  Age: 39 Year
  Sex: Male

DRUGS (5)
  1. SEROQUEL [Suspect]
     Route: 048
  2. SEROQUEL [Suspect]
     Route: 048
     Dates: end: 20070201
  3. LAMICTAL [Concomitant]
  4. EFFEXOR [Concomitant]
  5. DEPAKOTE [Concomitant]

REACTIONS (1)
  - NIGHTMARE [None]
